FAERS Safety Report 8422153-0 (Version None)
Quarter: 2012Q2

REPORT INFORMATION
  Report Type: 
  Country: None (occurrence: None)
  Receive Date: 20120608
  Receipt Date: 20120605
  Transmission Date: 20120825
  Serious: Yes (Other)
  Sender: FDA-Public Use
  Company Number: PHHY2011US44895

PATIENT
  Sex: Female

DRUGS (7)
  1. GILENYA [Suspect]
     Indication: MULTIPLE SCLEROSIS
     Dosage: 0.5 MG, QD
     Route: 048
     Dates: start: 20110520, end: 20110527
  2. DARVOCET [Concomitant]
     Dosage: UNK UKN, PRN
  3. ZANAFLEX [Concomitant]
     Dosage: UNK UKN, PRN
  4. FIORICET [Concomitant]
     Dosage: UNK UKN, PRN
  5. NEURONTIN [Concomitant]
     Dosage: 200 MG, UNK
  6. REBIF [Concomitant]
  7. ADDERALL 5 [Concomitant]
     Dosage: 40 MG, UNK

REACTIONS (15)
  - HEART RATE DECREASED [None]
  - ASTHENIA [None]
  - GASTROOESOPHAGEAL REFLUX DISEASE [None]
  - DIPLOPIA [None]
  - BALANCE DISORDER [None]
  - DYSPNOEA [None]
  - ABDOMINAL DISTENSION [None]
  - FATIGUE [None]
  - GASTROINTESTINAL PAIN [None]
  - ABDOMINAL PAIN [None]
  - MALAISE [None]
  - DIARRHOEA [None]
  - ERUCTATION [None]
  - MUSCULOSKELETAL PAIN [None]
  - DIZZINESS [None]
